FAERS Safety Report 8180065-4 (Version None)
Quarter: 2012Q1

REPORT INFORMATION
  Report Type: 
  Country: None (occurrence: None)
  Receive Date: 20120302
  Receipt Date: 20120302
  Transmission Date: 20120608
  Serious: Yes (Hospitalization)
  Sender: FDA-Public Use
  Company Number: None

PATIENT
  Age: 2 Year
  Sex: Female
  Weight: 11.793 kg

DRUGS (1)
  1. AUGMENTIN '125' [Suspect]
     Indication: IMPETIGO
     Dosage: 1 TSP
     Route: 048
     Dates: start: 20120222, end: 20120223

REACTIONS (5)
  - CRYING [None]
  - SCREAMING [None]
  - ABDOMINAL PAIN UPPER [None]
  - EAR PAIN [None]
  - HEADACHE [None]
